FAERS Safety Report 18009217 (Version 1)
Quarter: 2020Q3

REPORT INFORMATION
  Report Type: Spontaneous
  Country: US (occurrence: US)
  Receive Date: 20200710
  Receipt Date: 20200710
  Transmission Date: 20201103
  Serious: Yes (Other)
  Sender: FDA-Public Use
  Company Number: US-SAOL THERAPEUTICS-2020SAO00125

PATIENT
  Age: 65 Year
  Sex: Female

DRUGS (2)
  1. LIORESAL [Suspect]
     Active Substance: BACLOFEN
     Dosage: 1021 ?G, \DAY (ALSO REPORTED AS 1021.3 ?G/DAY)
     Route: 037
     Dates: end: 20200429
  2. LIORESAL [Suspect]
     Active Substance: BACLOFEN
     Dosage: 700 ?G, \DAY
     Route: 037
     Dates: start: 20200429

REACTIONS (2)
  - Unresponsive to stimuli [Recovered/Resolved]
  - Device infusion issue [Unknown]

NARRATIVE: CASE EVENT DATE: 20200428
